FAERS Safety Report 23440004 (Version 1)
Quarter: 2024Q1

REPORT INFORMATION
  Report Type: Spontaneous
  Country: US (occurrence: US)
  Receive Date: 20240124
  Receipt Date: 20240124
  Transmission Date: 20240410
  Serious: Yes (Other)
  Sender: FDA-Public Use
  Company Number: US-BRISTOL-MYERS SQUIBB COMPANY-2024-011980

PATIENT
  Age: 96 Year
  Sex: Female

DRUGS (1)
  1. LENALIDOMIDE [Suspect]
     Active Substance: LENALIDOMIDE
     Indication: Plasma cell myeloma in remission
     Dosage: TAKE 1 CAPSULE BY MOUTH EVERY DAY ON DAYS 1-21, THEN RESUME AFTER 7 DAYS OFF
     Route: 048

REACTIONS (9)
  - Fall [Unknown]
  - Pelvic fracture [Unknown]
  - Lung disorder [Unknown]
  - Discomfort [Unknown]
  - Pain [Unknown]
  - Fatigue [Unknown]
  - Somnolence [Unknown]
  - Cardiac disorder [Unknown]
  - Dyspnoea exertional [Unknown]
